FAERS Safety Report 13143494 (Version 1)
Quarter: 2017Q1

REPORT INFORMATION
  Report Type: Spontaneous
  Country: US (occurrence: US)
  Receive Date: 20170123
  Receipt Date: 20170123
  Transmission Date: 20170428
  Serious: No
  Sender: FDA-Public Use
  Company Number: US-CELGENEUS-USA-2017014363

PATIENT
  Sex: Female

DRUGS (1)
  1. REVLIMID [Suspect]
     Active Substance: LENALIDOMIDE
     Indication: PLASMA CELL MYELOMA
     Dosage: 25 MILLIGRAM
     Route: 048
     Dates: start: 20161215

REACTIONS (6)
  - Nausea [Unknown]
  - Decreased appetite [Unknown]
  - Fatigue [Unknown]
  - Musculoskeletal discomfort [Unknown]
  - Headache [Unknown]
  - Musculoskeletal pain [Unknown]
